FAERS Safety Report 5829328-5 (Version None)
Quarter: 2008Q3

REPORT INFORMATION
  Report Type: 
  Country: None (occurrence: None)
  Receive Date: 20080731
  Receipt Date: 20080417
  Transmission Date: 20090109
  Serious: No
  Sender: FDA-Public Use
  Company Number: US-BOEHRINGER INGELHEIM GMBH, GERMANY-2007-BP-20048BP

PATIENT
  Sex: Male
  Weight: 118 kg

DRUGS (11)
  1. MIRAPEX [Suspect]
     Indication: RESTLESS LEGS SYNDROME
     Route: 048
     Dates: start: 20010807, end: 20050601
  2. ALBUTEROL [Concomitant]
  3. ZOCOR [Concomitant]
  4. HYTRIN [Concomitant]
  5. GLUCOPHAGE [Concomitant]
  6. HUMULIN R [Concomitant]
  7. VIOXX [Concomitant]
  8. NASONEX [Concomitant]
  9. CLARITIN-D [Concomitant]
  10. SINGULAIR [Concomitant]
  11. PROVENTIL [Concomitant]
     Route: 055

REACTIONS (7)
  - EMOTIONAL DISTRESS [None]
  - HYPERPHAGIA [None]
  - HYPERSEXUALITY [None]
  - LIBIDO INCREASED [None]
  - OBSESSIVE-COMPULSIVE DISORDER [None]
  - PATHOLOGICAL GAMBLING [None]
  - WEIGHT INCREASED [None]
